FAERS Safety Report 18642665 (Version 1)
Quarter: 2020Q4

REPORT INFORMATION
  Report Type: Spontaneous
  Country: US (occurrence: US)
  Receive Date: 20201221
  Receipt Date: 20201221
  Transmission Date: 20210114
  Serious: Yes (Death, Other)
  Sender: FDA-Public Use
  Company Number: US-FRESENIUS KABI-FK202013587

PATIENT
  Sex: Male

DRUGS (3)
  1. INTRALIPID [Suspect]
     Active Substance: EGG PHOSPHOLIPIDS\GLYCERIN\SOYBEAN OIL
     Indication: PARENTERAL NUTRITION
     Dosage: 0.5 GM/KG/D
     Route: 041
  2. INTRALIPID [Suspect]
     Active Substance: EGG PHOSPHOLIPIDS\GLYCERIN\SOYBEAN OIL
     Dosage: 3 GM/KG/D
     Route: 041
  3. INTRALIPID [Suspect]
     Active Substance: EGG PHOSPHOLIPIDS\GLYCERIN\SOYBEAN OIL
     Dosage: AFTER HAVING NO INTRALIPID FOR GREATER THAN 48 HOURS, INTRALIPID WAS RESTARTED LAST WEEK (MAYBE THUR
     Route: 041

REACTIONS (4)
  - Metabolic acidosis [Fatal]
  - Chylothorax [Recovered/Resolved]
  - Cardiac failure [Unknown]
  - Renal failure [Unknown]
